FAERS Safety Report 6285450-3 (Version None)
Quarter: 2009Q3

REPORT INFORMATION
  Report Type: 
  Country: None (occurrence: None)
  Receive Date: 20090727
  Receipt Date: 20090723
  Transmission Date: 20100115
  Serious: Yes (Hospitalization)
  Sender: FDA-Public Use
  Company Number: US-B.I. PHARMACEUTICALS,INC./RIDGEFIELD-2009-DE-04861BY

PATIENT
  Sex: Male

DRUGS (7)
  1. CATAPRES [Suspect]
     Indication: HYPERTENSION
     Dosage: 0.2 MG
     Route: 048
     Dates: start: 20090217, end: 20090220
  2. RIVAROXABAN [Suspect]
     Indication: CEREBROVASCULAR ACCIDENT PROPHYLAXIS
     Route: 048
     Dates: start: 20070918, end: 20071019
  3. RIVAROXABAN [Suspect]
     Route: 048
     Dates: start: 20071021
  4. WARFARIN SODIUM [Suspect]
     Indication: CEREBROVASCULAR ACCIDENT PROPHYLAXIS
     Dosage: STRENGTH: 1,2.5 OR 5 MG ADJUSTED DOSE
     Route: 048
     Dates: start: 20070918, end: 20071019
  5. WARFARIN SODIUM [Suspect]
     Dosage: STRENGTH: 1,2.5 OR 5 MG ADJUSTED DOSE
     Route: 048
     Dates: start: 20071021
  6. CARTIA XT [Concomitant]
     Indication: HYPERTENSION
     Dosage: 300 MG
     Route: 048
     Dates: start: 20090222
  7. PROCARDIA [Concomitant]
     Indication: HYPERTENSION
     Dosage: 30 MG
     Route: 048
     Dates: start: 20090220, end: 20090221

REACTIONS (1)
  - HYPERTENSION [None]
